FAERS Safety Report 10948644 (Version 1)
Quarter: 2015Q1

REPORT INFORMATION
  Report Type: Spontaneous
  Country: US (occurrence: None)
  Receive Date: 20150323
  Receipt Date: 20150323
  Transmission Date: 20150721
  Serious: Yes (Hospitalization, Disabling)
  Sender: FDA-Public Use
  Company Number: None

PATIENT
  Age: 41 Year
  Sex: Male
  Weight: 92.99 kg

DRUGS (5)
  1. COMBIVENT [Concomitant]
     Active Substance: ALBUTEROL SULFATE\IPRATROPIUM BROMIDE
  2. FLOVENT [Suspect]
     Active Substance: FLUTICASONE PROPIONATE
     Indication: ASTHMA
     Dosage: 2 PUFFS
     Route: 055
     Dates: start: 20110201, end: 20150301
  3. LEVOTHYROXIN [Concomitant]
     Active Substance: LEVOTHYROXINE
  4. NEBULIZER [Concomitant]
     Active Substance: UNSPECIFIED INGREDIENT
  5. FLOVENT [Concomitant]
     Active Substance: FLUTICASONE PROPIONATE

REACTIONS (6)
  - Drug ineffective [None]
  - Disease complication [None]
  - Product substitution issue [None]
  - Asthma [None]
  - Product formulation issue [None]
  - Loss of employment [None]

NARRATIVE: CASE EVENT DATE: 20110201
